FAERS Safety Report 8607517-4 (Version None)
Quarter: 2012Q3

REPORT INFORMATION
  Report Type: 
  Country: None (occurrence: None)
  Receive Date: 20120821
  Receipt Date: 20120813
  Transmission Date: 20120928
  Serious: Yes (Other)
  Sender: FDA-Public Use
  Company Number: BR-JNJFOC-20120804475

PATIENT
  Sex: Female
  Weight: 60 kg

DRUGS (1)
  1. EXTRA STRENGTH TYLENOL [Suspect]
     Indication: HEADACHE
     Route: 048
     Dates: start: 20120806, end: 20120806

REACTIONS (4)
  - OESOPHAGEAL INJURY [None]
  - OESOPHAGEAL PAIN [None]
  - ODYNOPHAGIA [None]
  - PAINFUL RESPIRATION [None]
